FAERS Safety Report 10474200 (Version 1)
Quarter: 2014Q3

REPORT INFORMATION
  Report Type: Spontaneous
  Country: US (occurrence: US)
  Receive Date: 20140924
  Receipt Date: 20140924
  Transmission Date: 20150326
  Serious: No
  Sender: FDA-Public Use
  Company Number: US-BAUSCH-SYM-2014-18371

PATIENT
  Age: 74 Year
  Sex: Male

DRUGS (4)
  1. TRIAMCINOLONE [Concomitant]
     Active Substance: TRIAMCINOLONE
     Indication: PRODUCT USED FOR UNKNOWN INDICATION
     Dates: start: 20140127, end: 20140303
  2. FLUOROURACIL. [Suspect]
     Active Substance: FLUOROURACIL
     Indication: ACTINIC KERATOSIS
     Route: 061
     Dates: start: 20140124, end: 20140206
  3. FLUOROURACIL. [Suspect]
     Active Substance: FLUOROURACIL
     Route: 061
     Dates: start: 20140125
  4. FLUOROURACIL. [Suspect]
     Active Substance: FLUOROURACIL
     Route: 061
     Dates: start: 20140227

REACTIONS (5)
  - Application site erythema [Recovered/Resolved]
  - Product quality issue [Recovered/Resolved]
  - Application site dryness [Recovered/Resolved]
  - Application site pruritus [Recovered/Resolved]
  - Application site pain [Recovered/Resolved]

NARRATIVE: CASE EVENT DATE: 20140127
